FAERS Safety Report 6148196-8 (Version None)
Quarter: 2009Q2

REPORT INFORMATION
  Report Type: 
  Country: None (occurrence: None)
  Receive Date: 20090408
  Receipt Date: 20090326
  Transmission Date: 20091009
  Serious: Yes (Other)
  Sender: FDA-Public Use
  Company Number: US-ROCHE-618170

PATIENT
  Sex: Female
  Weight: 63 kg

DRUGS (2)
  1. CAPECITABINE [Suspect]
     Dosage: FREQUENCY REPORTED AS: EVERY DAY FOR 14 DAYS.
     Route: 048
     Dates: start: 20080409, end: 20090129
  2. GEMCITABINE HCL [Suspect]
     Route: 042

REACTIONS (2)
  - DISEASE PROGRESSION [None]
  - PALMAR-PLANTAR ERYTHRODYSAESTHESIA SYNDROME [None]
